FAERS Safety Report 16518792 (Version 1)
Quarter: 2019Q3

REPORT INFORMATION
  Report Type: Spontaneous
  Country: GB (occurrence: GB)
  Receive Date: 20190702
  Receipt Date: 20190702
  Transmission Date: 20191004
  Serious: Yes (Other)
  Sender: FDA-Public Use
  Company Number: GB-TEVA-2019-GB-1070923

PATIENT
  Age: 45 Year
  Sex: Female
  Weight: 52 kg

DRUGS (23)
  1. GAVISCON ADVANCE [Concomitant]
     Active Substance: POTASSIUM BICARBONATE\SODIUM ALGINATE
     Dates: start: 20181102
  2. FERROUS FUMARATE [Concomitant]
     Active Substance: FERROUS FUMARATE
     Dates: start: 20181102
  3. CETIRIZINE [Concomitant]
     Active Substance: CETIRIZINE HYDROCHLORIDE
     Dates: start: 20181102
  4. GABAPENTIN. [Concomitant]
     Active Substance: GABAPENTIN
     Dates: start: 20190322, end: 20190419
  5. DULCOLAX NOS [Concomitant]
     Active Substance: BISACODYL OR DOCUSATE SODIUM
     Dosage: USE AS DIRECTED
     Dates: start: 20181102
  6. METHOCARBAMOL. [Concomitant]
     Active Substance: METHOCARBAMOL
     Dates: start: 20190423, end: 20190521
  7. CASSIA [Concomitant]
     Dosage: TAKE 1 OR 2 AT NIGHT
     Dates: start: 20181102
  8. PYRIDOXINE [Concomitant]
     Active Substance: PYRIDOXINE
     Dosage: USE AS DIRECTED
     Dates: start: 20181102
  9. ASCORBIC ACID. [Concomitant]
     Active Substance: ASCORBIC ACID
     Dates: start: 20181102
  10. PARACETAMOL [Concomitant]
     Active Substance: ACETAMINOPHEN
     Dosage: 2 WHEN REQUIRED MAX TO BE TAKEN FOUR TIMES DAILY
     Dates: start: 20181102
  11. LACTULOSE. [Concomitant]
     Active Substance: LACTULOSE
     Dates: start: 20181102
  12. RANITIDINE. [Concomitant]
     Active Substance: RANITIDINE
     Dates: start: 20181102
  13. TRAMADOL. [Concomitant]
     Active Substance: TRAMADOL
     Dosage: IDEALLY 8 HOURLY
     Dates: start: 20181011
  14. ROBAXIN [Concomitant]
     Active Substance: METHOCARBAMOL
     Dates: start: 20181105
  15. IBUPROFEN. [Suspect]
     Active Substance: IBUPROFEN
     Dates: start: 20190521
  16. AMITRIPTYLINE HYDROCHLORIDE. [Concomitant]
     Active Substance: AMITRIPTYLINE HYDROCHLORIDE
     Dosage: AT BED TIME
     Dates: start: 20181102
  17. SALBUTAMOL [Concomitant]
     Active Substance: ALBUTEROL
     Dosage: AS DIRECTED
     Dates: start: 20181102
  18. QUININE [Concomitant]
     Active Substance: QUININE
     Dosage: AT BEDTIME
     Dates: start: 20190318, end: 20190424
  19. PANTOPRAZOLE [Concomitant]
     Active Substance: PANTOPRAZOLE
     Dates: start: 20181102
  20. THIAMINE. [Concomitant]
     Active Substance: THIAMINE
     Dates: start: 20181102
  21. AQUEOUS CREAM [Concomitant]
     Indication: DRY SKIN
     Dosage: APPLY TO DRY SKIN AND ALSO USE AS SOAP SUBSTITUTE
     Dates: start: 20181102
  22. FOLIC ACID. [Concomitant]
     Active Substance: FOLIC ACID
     Dates: start: 20181102
  23. FLUOXETINE [Concomitant]
     Active Substance: FLUOXETINE HYDROCHLORIDE
     Dosage: IN MORNING AFTER FOOD
     Dates: start: 20181102

REACTIONS (1)
  - Hypersensitivity [Unknown]

NARRATIVE: CASE EVENT DATE: 20190523
